FAERS Safety Report 16696668 (Version 2)
Quarter: 2019Q3

REPORT INFORMATION
  Report Type: Spontaneous
  Country: FR (occurrence: FR)
  Receive Date: 20190813
  Receipt Date: 20190822
  Transmission Date: 20191004
  Serious: Yes (Other)
  Sender: FDA-Public Use
  Company Number: FR-JNJFOC-20180838959

PATIENT
  Age: 56 Year
  Sex: Female
  Weight: 47 kg

DRUGS (10)
  1. SIMPONI [Suspect]
     Active Substance: GOLIMUMAB
     Route: 058
     Dates: start: 20190205
  2. SIMPONI [Suspect]
     Active Substance: GOLIMUMAB
     Route: 058
     Dates: start: 20180727
  3. SIMPONI [Suspect]
     Active Substance: GOLIMUMAB
     Route: 058
     Dates: start: 20190605
  4. SIMPONI [Suspect]
     Active Substance: GOLIMUMAB
     Route: 058
     Dates: start: 20190712
  5. SIMPONI [Suspect]
     Active Substance: GOLIMUMAB
     Route: 058
  6. SIMPONI [Suspect]
     Active Substance: GOLIMUMAB
     Route: 058
     Dates: start: 20190405
  7. SIMPONI [Suspect]
     Active Substance: GOLIMUMAB
     Indication: COLITIS ULCERATIVE
     Route: 058
     Dates: start: 20180615
  8. SIMPONI [Suspect]
     Active Substance: GOLIMUMAB
     Route: 058
     Dates: start: 20180824
  9. SIMPONI [Suspect]
     Active Substance: GOLIMUMAB
     Route: 058
     Dates: start: 20180629
  10. SIMPONI [Suspect]
     Active Substance: GOLIMUMAB
     Route: 058

REACTIONS (26)
  - Breast pain [Unknown]
  - Product dose omission [Unknown]
  - Amnesia [Recovered/Resolved]
  - Gastrooesophageal reflux disease [Recovered/Resolved]
  - Ear pain [Unknown]
  - Dyspnoea [Unknown]
  - Pain in extremity [Recovering/Resolving]
  - Product prescribing error [Unknown]
  - Haematochezia [Unknown]
  - Muscle spasms [Unknown]
  - Loss of libido [Unknown]
  - Constipation [Recovered/Resolved]
  - Bone pain [Unknown]
  - Mucous stools [Not Recovered/Not Resolved]
  - Diarrhoea [Unknown]
  - Muscle fatigue [Recovered/Resolved]
  - Varicella [Unknown]
  - Pruritus [Unknown]
  - Product use issue [Unknown]
  - Eye irritation [Unknown]
  - Paraesthesia [Unknown]
  - Proctalgia [Unknown]
  - Off label use [Unknown]
  - Wrong technique in product usage process [Unknown]
  - Anxiety [Unknown]
  - Flatulence [Unknown]

NARRATIVE: CASE EVENT DATE: 2018
